FAERS Safety Report 5289535-X (Version None)
Quarter: 2007Q2

REPORT INFORMATION
  Report Type: 
  Country: None (occurrence: None)
  Receive Date: 20070406
  Receipt Date: 20070321
  Transmission Date: 20071010
  Serious: Yes (Death, Other)
  Sender: FDA-Public Use
  Company Number: ES-JNJFOC-20070307306

PATIENT
  Age: 66 Year

DRUGS (2)
  1. REMICADE [Suspect]
     Indication: RHEUMATOID ARTHRITIS
     Route: 042
  2. ENTANERCEPT [Suspect]
     Indication: RHEUMATOID ARTHRITIS

REACTIONS (2)
  - DIVERTICULAR PERFORATION [None]
  - SEPSIS [None]
